FAERS Safety Report 6373900-3 (Version None)
Quarter: 2009Q3

REPORT INFORMATION
  Report Type: 
  Country: None (occurrence: None)
  Receive Date: 20090924
  Receipt Date: 20090508
  Transmission Date: 20100115
  Serious: No
  Sender: FDA-Public Use
  Company Number: US-ASTRAZENECA-2009UW11943

PATIENT
  Sex: Male

DRUGS (2)
  1. SEROQUEL [Suspect]
     Indication: BIPOLAR DISORDER
     Route: 048
     Dates: start: 20090501
  2. XANAX [Concomitant]

REACTIONS (5)
  - ANGER [None]
  - FEELING ABNORMAL [None]
  - HYPERSOMNIA [None]
  - MOOD SWINGS [None]
  - SOMNOLENCE [None]
